FAERS Safety Report 4803040-3 (Version None)
Quarter: 2005Q4

REPORT INFORMATION
  Report Type: 
  Country: None (occurrence: None)
  Receive Date: 20051019
  Receipt Date: 20050423
  Transmission Date: 20060501
  Serious: Yes (Other)
  Sender: FDA-Public Use
  Company Number: FR-GLAXOSMITHKLINE-B0379175A

PATIENT
  Age: 51 Year
  Sex: Male

DRUGS (4)
  1. ZOVIRAX [Suspect]
     Route: 047
     Dates: start: 20050414, end: 20050421
  2. MYDRIATICUM [Concomitant]
     Route: 047
     Dates: start: 20050414, end: 20050423
  3. TOBREX [Concomitant]
     Route: 047
     Dates: start: 20050414, end: 20050423
  4. ACYCLOVIR [Concomitant]
     Dates: start: 20050414, end: 20050501

REACTIONS (3)
  - EYE IRRITATION [None]
  - INCORRECT ROUTE OF DRUG ADMINISTRATION [None]
  - VISUAL ACUITY REDUCED [None]
